FAERS Safety Report 15982886 (Version 1)
Quarter: 2019Q1

REPORT INFORMATION
  Report Type: Spontaneous
  Country: US (occurrence: US)
  Receive Date: 20190219
  Receipt Date: 20190219
  Transmission Date: 20190418
  Serious: Yes (Hospitalization)
  Sender: FDA-Public Use
  Company Number: PHEH2019US007206

PATIENT
  Age: 60 Year
  Sex: Male
  Weight: 101.63 kg

DRUGS (1)
  1. ENTRESTO [Suspect]
     Active Substance: SACUBITRIL\VALSARTAN
     Indication: PRODUCT USED FOR UNKNOWN INDICATION
     Dosage: 50 MG (24/26 MG), BID
     Route: 048
     Dates: start: 20190201, end: 20190207

REACTIONS (2)
  - Pyrexia [Unknown]
  - Syncope [Unknown]

NARRATIVE: CASE EVENT DATE: 20190207
